FAERS Safety Report 12254844 (Version 2)
Quarter: 2016Q2

REPORT INFORMATION
  Report Type: Report from Study
  Country: US (occurrence: US)
  Receive Date: 20160411
  Receipt Date: 20160620
  Transmission Date: 20160815
  Serious: Yes (Death, Other)
  Sender: FDA-Public Use
  Company Number: US-GILEAD-2016-0207812

PATIENT
  Age: 77 Year
  Sex: Female
  Weight: 66.67 kg

DRUGS (25)
  1. FLUTICASONE [Concomitant]
     Active Substance: FLUTICASONE\FLUTICASONE PROPIONATE
  2. FUROSEMIDE. [Concomitant]
     Active Substance: FUROSEMIDE
  3. CRESTOR [Concomitant]
     Active Substance: ROSUVASTATIN CALCIUM
  4. ADVAIR HFA [Concomitant]
     Active Substance: FLUTICASONE PROPIONATE\SALMETEROL XINAFOATE
  5. ASPIR 81 [Concomitant]
  6. KLOR-CON M20 [Concomitant]
     Active Substance: POTASSIUM CHLORIDE
  7. CRANBERRY                          /01512301/ [Concomitant]
     Active Substance: CRANBERRY
  8. FISH OIL [Concomitant]
     Active Substance: FISH OIL
  9. VITAMIN B12 [Concomitant]
     Active Substance: CYANOCOBALAMIN
  10. LEVOTHYROXINE. [Concomitant]
     Active Substance: LEVOTHYROXINE
  11. BUMETANIDE. [Concomitant]
     Active Substance: BUMETANIDE
  12. DILTIAZEM HYDROCHLORIDE EXTENDED RELEASE [Concomitant]
     Active Substance: DILTIAZEM HYDROCHLORIDE
  13. ALBUTEROL SULFATE. [Concomitant]
     Active Substance: ALBUTEROL SULFATE
  14. OXYGEN. [Concomitant]
     Active Substance: OXYGEN
  15. VITAMIN D                          /00107901/ [Concomitant]
     Active Substance: ERGOCALCIFEROL
  16. SILDENAFIL. [Concomitant]
     Active Substance: SILDENAFIL
  17. VITAMIN C [Concomitant]
     Active Substance: ASCORBIC ACID
  18. SPIRONOLACTONE. [Concomitant]
     Active Substance: SPIRONOLACTONE
  19. ADCIRCA [Concomitant]
     Active Substance: TADALAFIL
  20. AZELASTINE [Concomitant]
     Active Substance: AZELASTINE
  21. COENZYME Q10 [Concomitant]
     Active Substance: UBIDECARENONE
  22. AMBRISENTAN [Suspect]
     Active Substance: AMBRISENTAN
     Indication: PULMONARY HYPERTENSION
     Dosage: 5 MG, QD
     Route: 065
     Dates: start: 20140822, end: 20160331
  23. PROAIR HFA [Concomitant]
     Active Substance: ALBUTEROL SULFATE
  24. MAGNESIUM [Concomitant]
     Active Substance: MAGNESIUM
  25. MULTIPLE VITAMIN WITH FOLIC ACID [Concomitant]
     Active Substance: FOLIC ACID\VITAMINS

REACTIONS (6)
  - Respiratory failure [Fatal]
  - Lung neoplasm malignant [Fatal]
  - Lymphadenopathy [Fatal]
  - Chronic obstructive pulmonary disease [Fatal]
  - Pulmonary fibrosis [Fatal]
  - Pulmonary mass [Fatal]

NARRATIVE: CASE EVENT DATE: 20160329
